FAERS Safety Report 7887871-1 (Version None)
Quarter: 2011Q4

REPORT INFORMATION
  Report Type: 
  Country: None (occurrence: None)
  Receive Date: 20111103
  Receipt Date: 20111103
  Transmission Date: 20120403
  Serious: Yes (Death)
  Sender: FDA-Public Use
  Company Number: None

PATIENT
  Age: 76 Year
  Sex: Male
  Weight: 95.238 kg

DRUGS (9)
  1. ASPIRIN [Concomitant]
     Route: 048
  2. FLOMAX [Concomitant]
     Route: 048
  3. METOPROLOL SUCCINATE [Concomitant]
     Route: 048
  4. FISH OIL [Concomitant]
     Route: 048
  5. SIMVASTATIN [Concomitant]
     Route: 048
  6. MULTI-VITAMIN [Concomitant]
     Route: 048
  7. PRILOSEC [Concomitant]
     Route: 048
  8. PRADAXA [Suspect]
     Indication: ATRIAL FIBRILLATION
     Dosage: 150MG
     Route: 048
     Dates: start: 20110509, end: 20111017
  9. PROBENECID [Concomitant]
     Route: 048

REACTIONS (1)
  - HAEMORRHAGE INTRACRANIAL [None]
